FAERS Safety Report 9173442 (Version 2)
Quarter: 2013Q2

REPORT INFORMATION
  Report Type: Spontaneous
  Country: FR (occurrence: FR)
  Receive Date: 20130320
  Receipt Date: 20130412
  Transmission Date: 20140414
  Serious: Yes (Hospitalization)
  Sender: FDA-Public Use
  Company Number: FR-JNJFOC-20130307321

PATIENT
  Age: 78 Year
  Sex: Female

DRUGS (5)
  1. XARELTO [Suspect]
     Indication: CEREBROVASCULAR ACCIDENT PROPHYLAXIS
     Route: 048
     Dates: start: 20121024
  2. XARELTO [Suspect]
     Indication: ATRIAL FIBRILLATION
     Route: 048
     Dates: start: 20121024
  3. HEMIGOXINE [Concomitant]
     Route: 065
  4. NEO MERCAZOLE [Concomitant]
     Route: 065
  5. CARDENSIEL [Concomitant]
     Route: 065

REACTIONS (3)
  - Cerebrovascular accident [Unknown]
  - Monoparesis [Unknown]
  - Drug ineffective [Unknown]
